FAERS Safety Report 20102261 (Version 3)
Quarter: 2023Q2

REPORT INFORMATION
  Report Type: Spontaneous
  Country: US (occurrence: US)
  Receive Date: 20211123
  Receipt Date: 20230505
  Transmission Date: 20230721
  Serious: Yes (Hospitalization, Other)
  Sender: FDA-Public Use
  Company Number: US-PFIZER INC-202101564481

PATIENT
  Age: 83 Year
  Sex: Female

DRUGS (1)
  1. VYNDAMAX [Suspect]
     Active Substance: TAFAMIDIS
     Dosage: 61 MG

REACTIONS (24)
  - Chronic kidney disease [Unknown]
  - Rheumatoid arthritis [Unknown]
  - Renal failure [Unknown]
  - Cardiac amyloidosis [Unknown]
  - Haematochezia [Unknown]
  - Blood pressure decreased [Unknown]
  - Polyneuropathy [Unknown]
  - Essential hypertension [Unknown]
  - Urinary incontinence [Unknown]
  - Carpal tunnel syndrome [Unknown]
  - Osteoarthritis [Unknown]
  - Tuberculin test positive [Unknown]
  - Sickle cell trait [Unknown]
  - Large intestine polyp [Unknown]
  - Diverticulum [Unknown]
  - Obesity [Unknown]
  - Vitamin D deficiency [Unknown]
  - Back pain [Unknown]
  - Arthralgia [Unknown]
  - Pain in extremity [Unknown]
  - Gammopathy [Unknown]
  - Gastrooesophageal reflux disease [Unknown]
  - Chronic left ventricular failure [Unknown]
  - Gastrointestinal disorder [Unknown]

NARRATIVE: CASE EVENT DATE: 20230401
